FAERS Safety Report 6274744-3 (Version None)
Quarter: 2009Q3

REPORT INFORMATION
  Report Type: 
  Country: None (occurrence: None)
  Receive Date: 20090721
  Receipt Date: 20071120
  Transmission Date: 20100115
  Serious: Yes (Other)
  Sender: FDA-Public Use
  Company Number: US-ASTRAZENECA-2007UW14880

PATIENT
  Age: 360 Month
  Sex: Male

DRUGS (11)
  1. SEROQUEL [Suspect]
     Indication: SLEEP DISORDER
     Route: 048
     Dates: start: 20000614
  2. SEROQUEL [Suspect]
     Route: 048
     Dates: start: 20000701, end: 20040101
  3. NOVOLIN R [Concomitant]
     Dosage: INJECT 5 UNITS SUBCUTANEOUS PER SLIDING SCALE TWICE DAILY
     Dates: start: 20071211
  4. LANTUS [Concomitant]
     Dosage: INJECT 20 UNITS SUBCUTANEOUS IN THE MORNING
     Dates: start: 20071211
  5. NIZORAL [Concomitant]
     Dates: start: 20000614
  6. ZOLOFT [Concomitant]
     Dates: start: 20000614
  7. COLACE [Concomitant]
     Dates: start: 20000614
  8. RISPERDAL [Concomitant]
     Dates: start: 20000614
  9. BUPROPION HYDROCHLORIDE [Concomitant]
     Dosage: 100 MG EACH AFTERNOON
     Route: 048
     Dates: start: 20071108
  10. CARBAMAZEPINE [Concomitant]
     Dosage: 200 MG, EACH AFTERNOON
     Route: 048
     Dates: start: 20071108
  11. PERPHENAZINE [Concomitant]
     Dosage: 8 MG, EACH AFTERNOON
     Route: 048
     Dates: start: 20070809

REACTIONS (3)
  - BLOOD GLUCOSE DECREASED [None]
  - PERIPHERAL MOTOR NEUROPATHY [None]
  - TYPE 1 DIABETES MELLITUS [None]
